FAERS Safety Report 23241102 (Version 1)
Quarter: 2023Q4

REPORT INFORMATION
  Report Type: Report from Study
  Country: BR (occurrence: BR)
  Receive Date: 20231129
  Receipt Date: 20231129
  Transmission Date: 20240109
  Serious: Yes (Other)
  Sender: FDA-Public Use
  Company Number: BR-SANDOZ-SDZ2023BR055689

PATIENT
  Sex: Male

DRUGS (1)
  1. OMNITROPE [Suspect]
     Active Substance: SOMATROPIN
     Indication: Hormone therapy
     Dosage: UNK
     Route: 065

REACTIONS (2)
  - Epiphyses premature fusion [Not Recovered/Not Resolved]
  - Device use issue [Unknown]
